FAERS Safety Report 7514849-X (Version None)
Quarter: 2011Q2

REPORT INFORMATION
  Report Type: 
  Country: None (occurrence: None)
  Receive Date: 20110526
  Receipt Date: 20110526
  Transmission Date: 20111010
  Serious: No
  Sender: FDA-Public Use
  Company Number: None

PATIENT
  Sex: Male
  Weight: 113 kg

DRUGS (4)
  1. SODIUM CHLORIDE [Concomitant]
  2. FLUDARABINE PHOSPHATE [Suspect]
     Dosage: 310 MG
     Dates: end: 20110513
  3. ALLOPURINOL [Concomitant]
  4. RITUXIMAB (MOAB C2B8 ANTI CD20, CHIMERIC) [Suspect]
     Dosage: 1849 MG
     Dates: end: 20110513

REACTIONS (2)
  - TUMOUR LYSIS SYNDROME [None]
  - HYPERURICAEMIA [None]
